FAERS Safety Report 7747256-5 (Version None)
Quarter: 2011Q3

REPORT INFORMATION
  Report Type: 
  Country: None (occurrence: None)
  Receive Date: 20110913
  Receipt Date: 20110902
  Transmission Date: 20111222
  Serious: Yes (Death)
  Sender: FDA-Public Use
  Company Number: US-JNJFOC-20110901868

PATIENT
  Age: 5 Month
  Sex: Male

DRUGS (2)
  1. ASPIRIN [Suspect]
     Indication: TEETHING
     Route: 048
     Dates: start: 19811101, end: 19811101
  2. ASPIRIN [Suspect]
     Indication: PYREXIA
     Route: 048
     Dates: start: 19811101, end: 19811101

REACTIONS (1)
  - REYE'S SYNDROME [None]
